FAERS Safety Report 6111015-X (Version None)
Quarter: 2009Q1

REPORT INFORMATION
  Report Type: 
  Country: None (occurrence: None)
  Receive Date: 20090311
  Receipt Date: 20090305
  Transmission Date: 20090719
  Serious: Yes (Other)
  Sender: FDA-Public Use
  Company Number: JP-BAYER-200910621BYL

PATIENT
  Age: 15 Year
  Sex: Female

DRUGS (1)
  1. FLUDARA [Suspect]
     Indication: STEM CELL TRANSPLANT
     Route: 042

REACTIONS (1)
  - HISTIOCYTOSIS HAEMATOPHAGIC [None]
